FAERS Safety Report 22604617 (Version 1)
Quarter: 2023Q2

REPORT INFORMATION
  Report Type: Spontaneous
  Country: US (occurrence: US)
  Receive Date: 20230615
  Receipt Date: 20230615
  Transmission Date: 20230721
  Serious: No
  Sender: FDA-Public Use
  Company Number: US-SA-SAC20230614000485

PATIENT
  Sex: Female

DRUGS (5)
  1. DUPIXENT [Suspect]
     Active Substance: DUPILUMAB
     Indication: Eosinophilic oesophagitis
     Dosage: 300 MG QW
     Route: 058
     Dates: start: 20230215
  2. MELOXICAM [Concomitant]
     Active Substance: MELOXICAM
  3. OMEPRAZOLE [Concomitant]
     Active Substance: OMEPRAZOLE
  4. TIZANIDINE [Concomitant]
     Active Substance: TIZANIDINE
  5. TOPIRAMATE [Concomitant]
     Active Substance: TOPIRAMATE

REACTIONS (3)
  - Memory impairment [Unknown]
  - Impaired quality of life [Unknown]
  - Therapeutic response decreased [Unknown]
